FAERS Safety Report 6401249-9 (Version None)
Quarter: 2009Q4

REPORT INFORMATION
  Report Type: 
  Country: None (occurrence: None)
  Receive Date: 20091009
  Receipt Date: 20091009
  Transmission Date: 20100525
  Serious: Yes (Hospitalization)
  Sender: FDA-Public Use
  Company Number: None

PATIENT
  Sex: Male
  Weight: 107.3 kg

DRUGS (1)
  1. RITUXIMAB [Suspect]
     Indication: CHRONIC LYMPHOCYTIC LEUKAEMIA
     Dosage: 500MG/M2 Q 3 MOS IV
     Route: 042
     Dates: start: 20090710, end: 20090710

REACTIONS (6)
  - BLOOD PRESSURE SYSTOLIC INCREASED [None]
  - CHILLS [None]
  - HEART RATE INCREASED [None]
  - HYPERHIDROSIS [None]
  - PRODUCTIVE COUGH [None]
  - PYREXIA [None]
